FAERS Safety Report 5042858-1 (Version None)
Quarter: 2006Q3

REPORT INFORMATION
  Report Type: 
  Country: None (occurrence: None)
  Receive Date: 20060705
  Receipt Date: 20060525
  Transmission Date: 20061208
  Serious: Yes (Disabling)
  Sender: FDA-Public Use
  Company Number: JP-JPN-A200601724

PATIENT
  Age: 78 Year
  Sex: Male
  Weight: 40 kg

DRUGS (14)
  1. FLUTICASONE PROPIONATE [Suspect]
     Indication: RHINITIS
     Dosage: 100MCG TWICE PER DAY
     Route: 045
     Dates: start: 20050604, end: 20051210
  2. CARNACULIN [Concomitant]
     Dosage: 3U PER DAY
     Route: 048
  3. CYANOCOBALAMIN [Concomitant]
     Dosage: 3U PER DAY
     Route: 048
  4. KINEDAK [Concomitant]
     Dosage: 3U PER DAY
     Route: 048
  5. RISUMIC [Concomitant]
     Dosage: 2U PER DAY
     Route: 048
  6. PAXIL [Concomitant]
     Dosage: 10MG PER DAY
     Route: 048
  7. DEPAS [Concomitant]
     Dosage: 3U PER DAY
     Route: 048
  8. MYONAL [Concomitant]
     Dosage: 3U PER DAY
     Route: 048
  9. FOIPAN [Concomitant]
     Dosage: 3U PER DAY
     Route: 048
  10. BERIZYM [Concomitant]
     Dosage: 3G PER DAY
     Route: 048
  11. PEON [Concomitant]
     Dosage: 1U PER DAY
     Route: 048
  12. AVISHOT [Concomitant]
     Dosage: 1U PER DAY
     Route: 048
  13. LENDORMIN [Concomitant]
     Dosage: 1U PER DAY
     Route: 048
  14. LAXOBERON [Concomitant]
     Route: 048

REACTIONS (3)
  - NASAL NECROSIS [None]
  - NASAL SEPTUM PERFORATION [None]
  - RHINALGIA [None]
